FAERS Safety Report 6290435-7 (Version None)
Quarter: 2009Q3

REPORT INFORMATION
  Report Type: 
  Country: None (occurrence: None)
  Receive Date: 20090730
  Receipt Date: 20090414
  Transmission Date: 20100115
  Serious: Yes (Hospitalization)
  Sender: FDA-Public Use
  Company Number: US-BRISTOL-MYERS SQUIBB COMPANY-14586366

PATIENT
  Age: 85 Year
  Sex: Male

DRUGS (3)
  1. COUMADIN [Suspect]
  2. ASPIRIN [Suspect]
  3. PLAVIX [Suspect]

REACTIONS (1)
  - HAEMORRHAGE [None]
